FAERS Safety Report 23740346 (Version 1)
Quarter: 2024Q2

REPORT INFORMATION
  Report Type: Spontaneous
  Country: GR (occurrence: GR)
  Receive Date: 20240415
  Receipt Date: 20240415
  Transmission Date: 20240716
  Serious: Yes (Other)
  Sender: FDA-Public Use
  Company Number: None

PATIENT
  Age: 52 Year
  Sex: Female
  Weight: 50 kg

DRUGS (6)
  1. SPRAVATO [Suspect]
     Active Substance: ESKETAMINE
     Indication: Suicidal ideation
     Dosage: 3 VIALS OF 28MG/VIAL IN THE FIRST SESSION
  2. BILAZ [Concomitant]
     Indication: Chronic spontaneous urticaria
  3. XOLAIR [Concomitant]
     Active Substance: OMALIZUMAB
     Indication: Chronic spontaneous urticaria
     Dosage: 2 INJECTIONS EVERY TWO MONTHS
  4. BROMAZEPAM [Concomitant]
     Active Substance: BROMAZEPAM
  5. INNOHEP [Concomitant]
     Active Substance: TINZAPARIN SODIUM
     Indication: Hysterectomy
  6. VENLAFAXINE HYDROCHLORIDE [Concomitant]
     Active Substance: VENLAFAXINE HYDROCHLORIDE

REACTIONS (1)
  - Urticaria [Recovered/Resolved]
